FAERS Safety Report 6523097-1 (Version None)
Quarter: 2009Q4

REPORT INFORMATION
  Report Type: 
  Country: None (occurrence: None)
  Receive Date: 20091222
  Receipt Date: 20091211
  Transmission Date: 20100525
  Serious: Yes (Death)
  Sender: FDA-Public Use
  Company Number: 008317

PATIENT
  Age: 44 Year
  Sex: Female

DRUGS (2)
  1. SAMSCA [Suspect]
     Indication: HEPATIC CIRRHOSIS
     Dosage: 15 MG, DAILY DOSE
     Route: 048
     Dates: start: 20091201, end: 20091210
  2. SAMSCA [Suspect]
     Indication: HYPONATRAEMIA
     Dosage: 15 MG, DAILY DOSE
     Route: 048
     Dates: start: 20091201, end: 20091210

REACTIONS (2)
  - GENERAL PHYSICAL HEALTH DETERIORATION [None]
  - OFF LABEL USE [None]
